FAERS Safety Report 9261404 (Version 1)
Quarter: 2013Q2

REPORT INFORMATION
  Report Type: Spontaneous
  Country: US (occurrence: US)
  Receive Date: 20130429
  Receipt Date: 20130429
  Transmission Date: 20140414
  Serious: Yes (Hospitalization)
  Sender: FDA-Public Use
  Company Number: US-BAYER-USA-2002-006520

PATIENT
  Age: 46 Year
  Sex: Female
  Weight: 54.55 kg

DRUGS (4)
  1. YASMIN [Suspect]
     Dosage: 1 TAB, 1X/DAY
     Route: 048
     Dates: start: 20010816, end: 200207
  2. ALLEGRA [Concomitant]
     Dosage: 180 MG DAILY
     Route: 048
  3. ENTEX [Concomitant]
  4. ADVICOR [Concomitant]

REACTIONS (2)
  - Cerebrovascular accident [Recovered/Resolved]
  - Apolipoprotein A-I increased [Recovered/Resolved]
